FAERS Safety Report 9197253 (Version 1)
Quarter: 2013Q1

REPORT INFORMATION
  Report Type: Spontaneous
  Country: US (occurrence: US)
  Receive Date: 20130328
  Receipt Date: 20130328
  Transmission Date: 20140127
  Serious: Yes (Other)
  Sender: FDA-Public Use
  Company Number: US-PFIZER INC-2013095345

PATIENT
  Sex: Male

DRUGS (1)
  1. LEVOXYL [Suspect]
     Dosage: UNK

REACTIONS (5)
  - Palpitations [Unknown]
  - Chest pain [Unknown]
  - Arthralgia [Unknown]
  - Feeling abnormal [Unknown]
  - Weight fluctuation [Unknown]
